FAERS Safety Report 9137710 (Version 1)
Quarter: 2013Q1

REPORT INFORMATION
  Report Type: Spontaneous
  Country: US (occurrence: US)
  Receive Date: 20130304
  Receipt Date: 20130304
  Transmission Date: 20140127
  Serious: No
  Sender: FDA-Public Use
  Company Number: US-ENDO PHARMACEUTICALS INC.-PERC20120140

PATIENT
  Age: 88 Year
  Sex: Female

DRUGS (1)
  1. PERCOCET [Suspect]
     Indication: PRODUCT USED FOR UNKNOWN INDICATION
     Dosage: UNKNOWN
     Route: 048
     Dates: start: 2011

REACTIONS (4)
  - Feeling abnormal [Unknown]
  - Malaise [Unknown]
  - Somnolence [Unknown]
  - Constipation [Unknown]
